FAERS Safety Report 13361150 (Version 1)
Quarter: 2017Q1

REPORT INFORMATION
  Report Type: Spontaneous
  Country: GB (occurrence: GB)
  Receive Date: 20170322
  Receipt Date: 20170322
  Transmission Date: 20170429
  Serious: Yes (Other)
  Sender: FDA-Public Use
  Company Number: GB-MYLANLABS-2017M1017130

PATIENT

DRUGS (20)
  1. ATORVASTATIN [Concomitant]
     Active Substance: ATORVASTATIN
     Dates: start: 20160418
  2. NYSTATIN. [Concomitant]
     Active Substance: NYSTATIN
     Dosage: USING THE ORAL DISPENSER PROVIDED, PLACE 1ML IN...
     Dates: start: 20170213, end: 20170227
  3. CLOTRIMAZOLE. [Concomitant]
     Active Substance: CLOTRIMAZOLE
     Dosage: APPLY TO THE AFFECTED AREA 2 TO 3 TIMES A DAY FOR UP TO 7 DAYS
     Dates: start: 20170301
  4. DULOXETINE. [Concomitant]
     Active Substance: DULOXETINE
     Dates: start: 20160418
  5. EMLA [Concomitant]
     Active Substance: LIDOCAINE\PRILOCAINE
     Dates: start: 20160418
  6. SUDOCREM [Concomitant]
     Dosage: AS DIRECTED
     Dates: start: 20160418
  7. DIHYDROCODEINE [Concomitant]
     Active Substance: DIHYDROCODEINE
     Dosage: 4-6 HRLY
     Dates: start: 20160418
  8. SALBUTAMOL [Concomitant]
     Active Substance: ALBUTEROL
     Route: 055
     Dates: start: 20170301
  9. AMOXICILLIN. [Concomitant]
     Active Substance: AMOXICILLIN
     Dates: start: 20170222, end: 20170301
  10. QUININE [Concomitant]
     Active Substance: QUININE
     Dosage: AT NIGHT
     Dates: start: 20160418
  11. SILDENAFIL. [Concomitant]
     Active Substance: SILDENAFIL
     Dosage: AS DIRECTED
     Dates: start: 20160418
  12. TINZAPARIN [Concomitant]
     Active Substance: TINZAPARIN
     Dates: start: 20160418
  13. TRAMADOL. [Suspect]
     Active Substance: TRAMADOL
     Dates: start: 20170302
  14. BECLOMETASONE [Concomitant]
     Active Substance: BECLOMETHASONE DIPROPIONATE
     Dosage: 1 -2 PUFFS TWICE A DAY
     Dates: start: 20160418
  15. FUSIDIC ACID [Concomitant]
     Active Substance: FUSIDIC ACID
     Dosage: APPLY 3-4 TIMES A DAY TO AFFECTED AREA
     Dates: start: 20170213, end: 20170214
  16. HYOSCINE BUTYLBROMIDE [Concomitant]
     Active Substance: BUTYLSCOPOLAMINE
     Dosage: ONE OR TWO TO BE TAKEN THREE TIMES A DAY
     Dates: start: 20160418
  17. CETIRIZINE [Concomitant]
     Active Substance: CETIRIZINE HYDROCHLORIDE
     Dates: start: 20160418
  18. PIOGLITAZONE. [Concomitant]
     Active Substance: PIOGLITAZONE
     Dates: start: 20160418
  19. TRICLOSAN. [Concomitant]
     Active Substance: TRICLOSAN
     Dosage: USE AS DIRECTED
     Dates: start: 20170222, end: 20170223
  20. PARACETAMOL [Concomitant]
     Active Substance: ACETAMINOPHEN
     Dates: start: 20160418

REACTIONS (4)
  - Nausea [Recovered/Resolved]
  - Rash [Recovered/Resolved]
  - Malaise [Recovered/Resolved]
  - Lethargy [Recovered/Resolved]

NARRATIVE: CASE EVENT DATE: 20170302
